FAERS Safety Report 11159789 (Version 7)
Quarter: 2018Q4

REPORT INFORMATION
  Report Type: Report from Study
  Country: DE (occurrence: DE)
  Receive Date: 20150603
  Receipt Date: 20181017
  Transmission Date: 20190204
  Serious: Yes (Other)
  Sender: FDA-Public Use
  Company Number: DE-INCYTE CORPORATION-2015IN002454

PATIENT

DRUGS (10)
  1. INCB018424 [Suspect]
     Active Substance: RUXOLITINIB
     Dosage: 20 MG, QD (4 DF PER DAY)
     Route: 048
     Dates: start: 20150306, end: 20150319
  2. METOPROLOL. [Concomitant]
     Active Substance: METOPROLOL
     Indication: BLOOD PRESSURE INCREASED
     Dosage: 25 MG, QD
     Route: 065
     Dates: start: 20140626
  3. INCB018424 [Suspect]
     Active Substance: RUXOLITINIB
     Dosage: 15 MG, QD
     Route: 048
     Dates: start: 20150220, end: 20150305
  4. ANAGRELIDE. [Concomitant]
     Active Substance: ANAGRELIDE HYDROCHLORIDE
     Indication: MYELOFIBROSIS
     Dosage: 1.0 MG, QD
     Route: 065
     Dates: start: 20050107
  5. CALCIMAGON-D3 [Concomitant]
     Active Substance: CALCIUM\CHOLECALCIFEROL
     Indication: PRODUCT USED FOR UNKNOWN INDICATION
     Dosage: 1 DF (400 IU VITAMIN D+ 0.5 MG CALCIUM), QD
     Route: 065
     Dates: start: 20150317
  6. HYDROXYUREA. [Concomitant]
     Active Substance: HYDROXYUREA
     Indication: MYELOFIBROSIS
     Dosage: 1.0 G, QD
     Route: 065
     Dates: start: 19970101
  7. INCB018424 [Suspect]
     Active Substance: RUXOLITINIB
     Dosage: 30 MG, QD (2 DF PER DAY)
     Route: 048
     Dates: start: 20150320
  8. LEVOTHYROXIN [Concomitant]
     Active Substance: LEVOTHYROXINE
     Indication: AUTOIMMUNE THYROIDITIS
     Dosage: 100 UG, QD
     Route: 065
     Dates: start: 20050107
  9. INCB018424 [Suspect]
     Active Substance: RUXOLITINIB
     Indication: MYELOFIBROSIS
     Dosage: 5 MG, QD
     Route: 048
     Dates: start: 20141231, end: 20150205
  10. INCB018424 [Suspect]
     Active Substance: RUXOLITINIB
     Dosage: 10 MG, QD (2 DF PER DAY)
     Route: 048
     Dates: start: 20150206, end: 20150219

REACTIONS (7)
  - Bronchitis [Recovered/Resolved]
  - Respiratory tract infection [Recovered/Resolved]
  - Bronchitis [Unknown]
  - Blood lactate dehydrogenase increased [Recovering/Resolving]
  - Spleen disorder [Recovered/Resolved]
  - Upper respiratory tract infection [Recovered/Resolved]
  - Proctalgia [Unknown]

NARRATIVE: CASE EVENT DATE: 20150206
